FAERS Safety Report 4513432-8 (Version None)
Quarter: 2004Q4

REPORT INFORMATION
  Report Type: 
  Country: None (occurrence: None)
  Receive Date: 20041130
  Receipt Date: 20040930
  Transmission Date: 20050328
  Serious: No
  Sender: FDA-Public Use
  Company Number: US-BRISTOL-MYERS SQUIBB COMPANY-12718508

PATIENT
  Age: 86 Year
  Sex: Female
  Weight: 62 kg

DRUGS (12)
  1. ERBITUX [Suspect]
     Indication: COLORECTAL CANCER
     Dosage: 3RD DOSE 648 MG ON 30-SEP-04. ALSO REC'D DOSE OF 405 MG
     Route: 042
  2. IRINOTECAN [Concomitant]
     Indication: COLORECTAL CANCER
  3. BENADRYL [Concomitant]
     Indication: PREMEDICATION
     Route: 042
  4. POTASSIUM [Concomitant]
  5. ATENOLOL [Concomitant]
  6. M.V.I. [Concomitant]
  7. COMPAZINE [Concomitant]
  8. NEXIUM [Concomitant]
  9. ZYPREXA [Concomitant]
  10. AMIODARONE [Concomitant]
  11. COUMADIN [Concomitant]
  12. ARICEPT [Concomitant]

REACTIONS (1)
  - NEUTROPHIL COUNT DECREASED [None]
